FAERS Safety Report 5278037-2 (Version None)
Quarter: 2007Q1

REPORT INFORMATION
  Report Type: 
  Country: None (occurrence: None)
  Receive Date: 20070321
  Receipt Date: 20070315
  Transmission Date: 20070707
  Serious: Yes (Death, Life-Threatening, Hospitalization)
  Sender: FDA-Public Use
  Company Number: 2007SP003140

PATIENT
  Age: 58 Year
  Sex: Male
  Weight: 82 kg

DRUGS (24)
  1. TEMOZOLOMIDE (S-P) (TEMOZOLOMIDE) [Suspect]
     Dosage: SEE IMAGE
     Route: 048
     Dates: start: 20060126, end: 20060309
  2. TEMOZOLOMIDE (S-P) (TEMOZOLOMIDE) [Suspect]
     Dosage: SEE IMAGE
     Route: 048
     Dates: start: 20060407, end: 20060411
  3. TEMOZOLOMIDE (S-P) (TEMOZOLOMIDE) [Suspect]
     Dosage: SEE IMAGE
     Route: 048
     Dates: start: 20060505, end: 20060509
  4. TEMOZOLOMIDE (S-P) (TEMOZOLOMIDE) [Suspect]
     Dosage: SEE IMAGE
     Route: 048
     Dates: start: 20060602, end: 20060606
  5. TEMOZOLOMIDE (S-P) (TEMOZOLOMIDE) [Suspect]
     Dosage: SEE IMAGE
     Route: 048
     Dates: start: 20060707, end: 20060707
  6. TEMOZOLOMIDE (S-P) (TEMOZOLOMIDE) [Suspect]
     Dosage: SEE IMAGE
     Route: 048
     Dates: start: 20060804, end: 20060808
  7. TEMOZOLOMIDE (S-P) (TEMOZOLOMIDE) [Suspect]
     Dosage: SEE IMAGE
     Route: 048
     Dates: start: 20060901, end: 20060905
  8. TEMOZOLOMIDE (S-P) (TEMOZOLOMIDE) [Suspect]
     Dosage: SEE IMAGE
     Route: 048
     Dates: start: 20060929, end: 20061003
  9. TEMOZOLOMIDE (S-P) (TEMOZOLOMIDE) [Suspect]
     Dosage: SEE IMAGE
     Route: 048
     Dates: start: 20061027, end: 20061031
  10. TEMOZOLOMIDE (S-P) (TEMOZOLOMIDE) [Suspect]
     Dosage: SEE IMAGE
     Route: 048
     Dates: start: 20061124, end: 20061128
  11. TEMOZOLOMIDE (S-P) (TEMOZOLOMIDE) [Suspect]
     Dosage: SEE IMAGE
     Route: 048
     Dates: start: 20061222, end: 20061226
  12. TEMOZOLOMIDE (S-P) (TEMOZOLOMIDE) [Suspect]
     Dosage: SEE IMAGE
     Route: 048
     Dates: start: 20070119, end: 20070123
  13. TEMOZOLOMIDE (S-P) (TEMOZOLOMIDE) [Suspect]
     Dosage: SEE IMAGE
     Route: 048
     Dates: start: 20070216, end: 20070220
  14. RADIATION THEARPY [Concomitant]
  15. PREDONINE [Concomitant]
  16. TAKEPRON OD [Concomitant]
  17. DEPAKENE [Concomitant]
  18. HYDANTOL F [Concomitant]
  19. BAKTAR [Concomitant]
  20. LASIX [Concomitant]
  21. ZOFRAN [Concomitant]
  22. ALDACTAZIDE [Concomitant]
  23. GATIFLOXACIN [Concomitant]
  24. DEPAKENE [Concomitant]

REACTIONS (9)
  - ACQUIRED DIAPHRAGMATIC EVENTRATION [None]
  - BLOOD PRESSURE DECREASED [None]
  - CARDIAC FAILURE [None]
  - INFECTION [None]
  - PLEURAL EFFUSION [None]
  - PULMONARY EMBOLISM [None]
  - RESPIRATORY ARREST [None]
  - RESPIRATORY FAILURE [None]
  - UPPER RESPIRATORY TRACT INFLAMMATION [None]
